FAERS Safety Report 9049552 (Version 1)
Quarter: 2013Q1

REPORT INFORMATION
  Report Type: Report from Study
  Country: DE (occurrence: DE)
  Receive Date: 20130205
  Receipt Date: 20130205
  Transmission Date: 20140127
  Serious: Yes (Disabling)
  Sender: FDA-Public Use
  Company Number: DE-BAXTER-2013BAX004231

PATIENT
  Sex: Female
  Weight: 91 kg

DRUGS (5)
  1. ENDOXAN 1G [Suspect]
     Indication: HER-2 POSITIVE BREAST CANCER
     Route: 065
     Dates: end: 20130116
  2. PERTUZUMAB [Suspect]
     Indication: HER-2 POSITIVE BREAST CANCER
     Route: 042
     Dates: start: 20130102
  3. PACLITAXEL [Suspect]
     Indication: HER-2 POSITIVE BREAST CANCER
     Route: 042
     Dates: start: 20130102, end: 20130116
  4. EPIRUBICIN HYDROCHLORIDE [Suspect]
     Indication: HER-2 POSITIVE BREAST CANCER
     Route: 065
     Dates: start: 20130102, end: 20130116
  5. TRASTUZUMAB [Suspect]
     Indication: HER-2 POSITIVE BREAST CANCER
     Route: 042
     Dates: start: 20130102

REACTIONS (1)
  - Hepatitis B [Not Recovered/Not Resolved]
